FAERS Safety Report 12831705 (Version 1)
Quarter: 2016Q4

REPORT INFORMATION
  Report Type: Spontaneous
  Country: BR (occurrence: BR)
  Receive Date: 20161010
  Receipt Date: 20161010
  Transmission Date: 20170207
  Serious: Yes (Other)
  Sender: FDA-Public Use
  Company Number: BR-ROCHE-1839493

PATIENT
  Sex: Female

DRUGS (3)
  1. RIVOTRIL [Suspect]
     Active Substance: CLONAZEPAM
     Indication: INSOMNIA
     Route: 065
  2. RIVOTRIL [Suspect]
     Active Substance: CLONAZEPAM
     Dosage: 3 DROPS
     Route: 065
     Dates: start: 20161004
  3. RIVOTRIL [Suspect]
     Active Substance: CLONAZEPAM
     Dosage: 4 DROPS
     Route: 065
     Dates: start: 20161004

REACTIONS (5)
  - Panic disorder [Unknown]
  - Anxiety [Unknown]
  - Intentional product use issue [Unknown]
  - Dizziness [Unknown]
  - Drug ineffective [Unknown]
